FAERS Safety Report 14874651 (Version 1)
Quarter: 2018Q2

REPORT INFORMATION
  Report Type: Spontaneous
  Country: US (occurrence: US)
  Receive Date: 20180510
  Receipt Date: 20180510
  Transmission Date: 20180711
  Serious: No
  Sender: FDA-Public Use
  Company Number: US-MYLANLABS-2018M1024901

PATIENT
  Sex: Female
  Weight: 57.15 kg

DRUGS (3)
  1. ESTRADIOL MYLAN [Suspect]
     Active Substance: ESTRADIOL
     Indication: MENOPAUSE
  2. ESTRADIOL TRANSDERMAL SYSTEM [Suspect]
     Active Substance: ESTRADIOL
     Dosage: UNK GEL
     Route: 062
  3. ESTRADIOL TRANSDERMAL SYSTEM [Suspect]
     Active Substance: ESTRADIOL
     Indication: MENOPAUSE
     Dosage: 0.05 ?G,PATCH
     Route: 062

REACTIONS (5)
  - Application site warmth [Unknown]
  - Product substitution issue [Unknown]
  - Feeling abnormal [Unknown]
  - Hypersensitivity [Unknown]
  - Pruritus [Unknown]
